FAERS Safety Report 11127857 (Version 1)
Quarter: 2015Q2

REPORT INFORMATION
  Report Type: Spontaneous
  Country: DK (occurrence: None)
  Receive Date: 20150519
  Receipt Date: 20150519
  Transmission Date: 20150821
  Serious: Yes (Death)
  Sender: FDA-Public Use
  Company Number: FK201502244

PATIENT
  Age: 65 Year
  Sex: Male
  Weight: 80 kg

DRUGS (3)
  1. HERCEPTIN [Suspect]
     Active Substance: TRASTUZUMAB
     Indication: OESOPHAGEAL ADENOCARCINOMA STAGE III
     Route: 042
     Dates: start: 20150102, end: 20150410
  2. OXALIPLATIN 5MG/ML CONCENTRATE FOR SOLUTION FOR INFUSION (OXALIPLATIN) [Suspect]
     Active Substance: OXALIPLATIN
     Indication: OESOPHAGEAL ADENOCARCINOMA STAGE III
     Route: 042
     Dates: start: 20150102, end: 20150410
  3. CAPECITABINE ACTAVIS (CAPECITABINE) (CAPECITABINE) [Suspect]
     Active Substance: CAPECITABINE
     Indication: OESOPHAGEAL ADENOCARCINOMA STAGE III
     Route: 048
     Dates: start: 20150102, end: 20150410

REACTIONS (2)
  - Brain injury [None]
  - Cardiac arrest [None]

NARRATIVE: CASE EVENT DATE: 20150422
